FAERS Safety Report 11725151 (Version 1)
Quarter: 2015Q4

REPORT INFORMATION
  Report Type: Spontaneous
  Country: US (occurrence: US)
  Receive Date: 20151111
  Receipt Date: 20151111
  Transmission Date: 20160304
  Serious: No
  Sender: FDA-Public Use
  Company Number: US-UCBSA-2014021595

PATIENT
  Age: 63 Year
  Sex: Male

DRUGS (4)
  1. VIMPAT [Suspect]
     Active Substance: LACOSAMIDE
     Indication: SEIZURE
     Dosage: 200 MG, 2X/DAY (BID)
     Route: 048
     Dates: start: 20140912, end: 2014
  2. KEPPRA [Concomitant]
     Active Substance: LEVETIRACETAM
     Indication: PRODUCT USED FOR UNKNOWN INDICATION
     Dosage: 750 MG, 2X/DAY (BID)
     Route: 048
  3. VIMPAT [Suspect]
     Active Substance: LACOSAMIDE
     Dosage: UPPED DOSE FORM 400 MG
     Route: 048
     Dates: start: 20141207
  4. DILANTIN [Concomitant]
     Active Substance: PHENYTOIN
     Indication: PRODUCT USED FOR UNKNOWN INDICATION
     Dosage: 300 MG FIRST DOSE, 200 MG SECOND DOSE
     Route: 048
     Dates: start: 1983

REACTIONS (3)
  - Overdose [Unknown]
  - Seizure [Not Recovered/Not Resolved]
  - Off label use [Unknown]

NARRATIVE: CASE EVENT DATE: 20141207
